FAERS Safety Report 8313000-6 (Version None)
Quarter: 2012Q2

REPORT INFORMATION
  Report Type: 
  Country: None (occurrence: None)
  Receive Date: 20120424
  Receipt Date: 20120412
  Transmission Date: 20120825
  Serious: Yes (Life-Threatening, Hospitalization)
  Sender: FDA-Public Use
  Company Number: 1257230

PATIENT
  Age: 65 Year
  Sex: Female

DRUGS (3)
  1. DOMPERIDONE [Concomitant]
  2. CARBOPLATIN [Suspect]
     Indication: LUNG SQUAMOUS CELL CARCINOMA STAGE UNSPECIFIED
     Dosage: WEEK 1, CYCLE 2, INTRAVENOUS (NOT OTHERWISE SPECIFIED)
     Route: 042
  3. VINORELBINE [Suspect]
     Indication: LUNG SQUAMOUS CELL CARCINOMA STAGE UNSPECIFIED
     Dosage: WEEK 2, WEEK 3 OFF, ORAL
     Route: 048

REACTIONS (2)
  - PANCYTOPENIA [None]
  - NEUTROPENIC SEPSIS [None]
